FAERS Safety Report 12328752 (Version 1)
Quarter: 2016Q2

REPORT INFORMATION
  Report Type: Spontaneous
  Country: US (occurrence: US)
  Receive Date: 20160503
  Receipt Date: 20160503
  Transmission Date: 20160815
  Serious: No
  Sender: FDA-Public Use
  Company Number: US-BEH-2015050545

PATIENT
  Age: 60 Year
  Sex: Female
  Weight: 76 kg

DRUGS (27)
  1. HIZENTRA [Suspect]
     Active Substance: HUMAN IMMUNOGLOBULIN G
     Indication: IMMUNODEFICIENCY COMMON VARIABLE
     Route: 058
  2. DOXYCYCLINE. [Concomitant]
     Active Substance: DOXYCYCLINE
  3. SUMATRIPTAN. [Concomitant]
     Active Substance: SUMATRIPTAN
  4. FROVA [Concomitant]
     Active Substance: FROVATRIPTAN SUCCINATE
  5. DIPHENHYDRAMINE. [Concomitant]
     Active Substance: DIPHENHYDRAMINE
  6. CLOTRIMAZOLE/BETAMETHASONE [Concomitant]
  7. ESTRACE [Concomitant]
     Active Substance: ESTRADIOL
  8. METHADONE [Concomitant]
     Active Substance: METHADONE HYDROCHLORIDE
  9. PROZAC [Concomitant]
     Active Substance: FLUOXETINE HYDROCHLORIDE
  10. URELLE [Concomitant]
     Active Substance: HYOSCYAMINE SULFATE\METHENAMINE\METHYLENE BLUE\PHENYL SALICYLATE\SODIUM PHOSPHATE, MONOBASIC, MONOHYDRATE
  11. LMX [Concomitant]
     Active Substance: LIDOCAINE
  12. MIRALAX [Concomitant]
     Active Substance: POLYETHYLENE GLYCOL 3350
  13. ACIPHEX EC [Concomitant]
  14. BACTROBAN [Concomitant]
     Active Substance: MUPIROCIN\MUPIROCIN CALCIUM
  15. OXYCODONE/APAP [Concomitant]
     Active Substance: ACETAMINOPHEN\OXYCODONE HYDROCHLORIDE
  16. PROBIOTIC [Concomitant]
     Active Substance: PROBIOTICS NOS
  17. MENEST [Concomitant]
     Active Substance: ESTROGENS, ESTERIFIED
  18. PROVIGIL [Concomitant]
     Active Substance: MODAFINIL
  19. PROMETHAZINE [Concomitant]
     Active Substance: PROMETHAZINE\PROMETHAZINE HYDROCHLORIDE
  20. MACROBID [Concomitant]
     Active Substance: NITROFURANTOIN\NITROFURANTOIN MONOHYDRATE
  21. EPIPEN [Concomitant]
     Active Substance: EPINEPHRINE
  22. DIPHENHYDRAMINE CREAM [Concomitant]
  23. SUMATRIPTAN. [Concomitant]
     Active Substance: SUMATRIPTAN
  24. CEFDINIR. [Concomitant]
     Active Substance: CEFDINIR
  25. ELMIRON [Concomitant]
     Active Substance: PENTOSAN POLYSULFATE SODIUM
  26. TOPAMAX [Concomitant]
     Active Substance: TOPIRAMATE
  27. MUPIROCIN. [Concomitant]
     Active Substance: MUPIROCIN

REACTIONS (1)
  - Headache [Not Recovered/Not Resolved]

NARRATIVE: CASE EVENT DATE: 20150416
